FAERS Safety Report 22891146 (Version 3)
Quarter: 2023Q4

REPORT INFORMATION
  Report Type: Report from Study
  Country: US (occurrence: US)
  Receive Date: 20230901
  Receipt Date: 20231122
  Transmission Date: 20240109
  Serious: No
  Sender: FDA-Public Use
  Company Number: US-ACADIA PHARMACEUTICALS INC.-ACA-2023-TRF-003360

PATIENT
  Age: 16 Year
  Sex: Female

DRUGS (10)
  1. DAYBUE [Suspect]
     Active Substance: TROFINETIDE
     Indication: Rett syndrome
     Dosage: 60 MILLILITER, BID (IN MORNING AND BEFORE BEDTIME)
     Route: 048
     Dates: start: 20230727
  2. DAYBUE [Suspect]
     Active Substance: TROFINETIDE
     Dosage: 60 MILLILITER, BID (IN MORNING AND BEFORE BEDTIME)
     Route: 048
     Dates: end: 20230910
  3. TRILEPTAL [Concomitant]
     Active Substance: OXCARBAZEPINE
     Indication: Generalised tonic-clonic seizure
     Dosage: 750 MILLIGRAM, BID (IN MORNING AND BEFORE BEDTIME)
     Route: 048
     Dates: start: 20230426, end: 20230717
  4. TRILEPTAL [Concomitant]
     Active Substance: OXCARBAZEPINE
     Indication: Seizure
     Dosage: 600 MILLIGRAM, BID IN MORNING AND BEFORE BEDTIME
     Route: 048
     Dates: start: 20230718, end: 20230912
  5. TRILEPTAL [Concomitant]
     Active Substance: OXCARBAZEPINE
     Dosage: 600 MILLIGRAM, BID IN MORNING AND BEFORE BEDTIME
     Route: 048
     Dates: start: 20230913
  6. LIORESAL [Concomitant]
     Active Substance: BACLOFEN
     Dosage: 5 MILLIGRAM, BID (IN MORNING AND BEFORE BEDTIME)
     Route: 048
     Dates: start: 20230426, end: 20230626
  7. LIORESAL [Concomitant]
     Active Substance: BACLOFEN
     Dosage: 5 MILLIGRAM, BID (IN MORNING AND BEFORE BEDTIME)
     Route: 048
     Dates: start: 20230627
  8. VALTOCO [Concomitant]
     Active Substance: DIAZEPAM
     Indication: Seizure
     Dosage: ADMINISTER 10 MILLIGRAM, INTO AFFECTED NOSTRIL, ONCE FOR UPTO 1 DOSE
     Route: 045
     Dates: start: 20230602
  9. CATAPRES [Concomitant]
     Active Substance: CLONIDINE HYDROCHLORIDE
     Dosage: 0.1 MG, EVERY NIGHT AT BEDTIME
     Route: 048
     Dates: start: 20230426, end: 20231023
  10. ROBINUL [Concomitant]
     Active Substance: GLYCOPYRROLATE
     Dosage: 2 MILLIGRAM, BID (IN MORNING AND IN EVENING)
     Route: 048
     Dates: start: 20230426, end: 20231023

REACTIONS (6)
  - Mood altered [Recovered/Resolved]
  - Urine odour abnormal [Recovered/Resolved]
  - Constipation [Recovered/Resolved]
  - Weight decreased [Recovered/Resolved]
  - Decreased appetite [Recovered/Resolved]
  - Diarrhoea [Not Recovered/Not Resolved]

NARRATIVE: CASE EVENT DATE: 20230805
